FAERS Safety Report 4288787-2 (Version None)
Quarter: 2004Q1

REPORT INFORMATION
  Report Type: 
  Country: None (occurrence: None)
  Receive Date: 20040205
  Receipt Date: 20040127
  Transmission Date: 20041129
  Serious: Yes (Hospitalization)
  Sender: FDA-Public Use
  Company Number: 2004196828FR

PATIENT
  Age: 39 Year
  Sex: Female
  Weight: 66 kg

DRUGS (1)
  1. CELEBREX [Suspect]
     Dosage: ORAL
     Route: 048
     Dates: start: 20031115, end: 20031115

REACTIONS (6)
  - ANGIONEUROTIC OEDEMA [None]
  - DYSPHONIA [None]
  - DYSPNOEA [None]
  - HYPOTHERMIA [None]
  - MALAISE [None]
  - URTICARIA [None]
